FAERS Safety Report 23210720 (Version 1)
Quarter: 2023Q4

REPORT INFORMATION
  Report Type: Spontaneous
  Country: CN (occurrence: CN)
  Receive Date: 20231121
  Receipt Date: 20231121
  Transmission Date: 20240110
  Serious: Yes (Hospitalization, Other)
  Sender: FDA-Public Use
  Company Number: CN-PFIZER INC-PV202300187321

PATIENT
  Age: 15 Year
  Sex: Female
  Weight: 62.2 kg

DRUGS (7)
  1. CYTARABINE [Suspect]
     Active Substance: CYTARABINE
     Indication: Chemotherapy
     Dosage: 0.1 G, 1X/DAY
     Route: 041
     Dates: start: 20231018, end: 20231022
  2. CYTARABINE [Suspect]
     Active Substance: CYTARABINE
     Dosage: 0.1 G, 1X/DAY
     Route: 041
     Dates: start: 20231025, end: 20231030
  3. PEGASPARGASE [Suspect]
     Active Substance: PEGASPARGASE
     Indication: Chemotherapy
     Dosage: 3750 IU, 1X/DAY
     Route: 030
     Dates: start: 20231018, end: 20231019
  4. MERCAPTOPURINE [Suspect]
     Active Substance: MERCAPTOPURINE
     Indication: Chemotherapy
     Dosage: 75 MG, 1X/DAY
     Route: 048
     Dates: start: 20231018, end: 20231101
  5. CYCLOPHOSPHAMIDE [Suspect]
     Active Substance: CYCLOPHOSPHAMIDE
     Indication: Chemotherapy
     Dosage: 1.2 G, 1X/DAY
     Route: 041
     Dates: start: 20231018, end: 20231019
  6. GRANISETRON [Concomitant]
     Active Substance: GRANISETRON
     Indication: Vomiting
  7. NYSTATIN [Concomitant]
     Active Substance: NYSTATIN
     Indication: Therapeutic procedure
     Dosage: MOUTH RINSING

REACTIONS (3)
  - Myelosuppression [Recovering/Resolving]
  - Upper respiratory tract congestion [Unknown]
  - Tonsillitis [Unknown]

NARRATIVE: CASE EVENT DATE: 20231019
